FAERS Safety Report 6677026-0 (Version None)
Quarter: 2010Q2

REPORT INFORMATION
  Report Type: 
  Country: None (occurrence: None)
  Receive Date: 20100412
  Receipt Date: 20100331
  Transmission Date: 20101027
  Serious: Yes (Other)
  Sender: FDA-Public Use
  Company Number: HU-BAYER-201021020GPV

PATIENT
  Age: 52 Year
  Sex: Female

DRUGS (1)
  1. MIRENA [Suspect]
     Indication: CONTRACEPTION
     Route: 015
     Dates: start: 20090724, end: 20091206

REACTIONS (4)
  - ANAEMIA [None]
  - HYPOMENORRHOEA [None]
  - MENORRHAGIA [None]
  - UTERINE LEIOMYOMA [None]
